FAERS Safety Report 11143454 (Version 1)
Quarter: 2015Q2

REPORT INFORMATION
  Report Type: Spontaneous
  Country: US (occurrence: US)
  Receive Date: 20150526
  Receipt Date: 20150526
  Transmission Date: 20150821
  Serious: No
  Sender: FDA-Public Use
  Company Number: US-BAYER-2015-197188

PATIENT
  Age: 86 Year
  Sex: Female
  Weight: 54 kg

DRUGS (10)
  1. LATANOPROST. [Concomitant]
     Active Substance: LATANOPROST
  2. REFRESH TEARS [Concomitant]
     Active Substance: CARBOXYMETHYLCELLULOSE SODIUM
  3. TEMAZEPAM. [Concomitant]
     Active Substance: TEMAZEPAM
  4. MIRALAX [Suspect]
     Active Substance: POLYETHYLENE GLYCOL 3350
     Indication: CONSTIPATION
     Dosage: 1 DF, PRN
     Route: 048
     Dates: start: 20150429
  5. SYSTANE [BORIC AC,CACL DIHYDR,MACROGOL,MGCL ANHYDR,KCL,PROPYL GLYC [Concomitant]
  6. COLACE [Concomitant]
     Active Substance: DOCUSATE SODIUM
  7. LOSARTAN [Concomitant]
     Active Substance: LOSARTAN
  8. ZANTAC [Concomitant]
     Active Substance: RANITIDINE HYDROCHLORIDE
  9. BAYER GENUINE ASPIRIN [Concomitant]
     Active Substance: ASPIRIN
     Dosage: 1 DF, QD
  10. METOPROLOL [Concomitant]
     Active Substance: METOPROLOL

REACTIONS (2)
  - Faecal incontinence [Recovered/Resolved]
  - Diarrhoea [Recovered/Resolved]

NARRATIVE: CASE EVENT DATE: 201504
